FAERS Safety Report 9894004 (Version 2)
Quarter: 2014Q2

REPORT INFORMATION
  Report Type: Spontaneous
  Country: US (occurrence: US)
  Receive Date: 20140213
  Receipt Date: 20140502
  Transmission Date: 20141212
  Serious: No
  Sender: FDA-Public Use
  Company Number: US-PFIZER INC-2014040756

PATIENT
  Age: 56 Year
  Sex: Female
  Weight: 95.24 kg

DRUGS (10)
  1. SUTENT [Suspect]
     Indication: RENAL CELL CARCINOMA
     Dosage: 37.5 MG, ONCE A DAY (CYCLE 2/2)
     Route: 048
     Dates: start: 20110609
  2. SUTENT [Suspect]
     Dosage: 25 MG, ONCE A DAY (CYCLE 2/2)
     Route: 048
  3. SUTENT [Suspect]
     Dosage: 12.5 MG, ONCE A DAY (CYCLE 2/2)
     Route: 048
  4. SUTENT [Suspect]
     Dosage: 25 MG, ONCE A DAY (CYCLE 2/2)
     Route: 048
  5. CLARITIN [Concomitant]
     Indication: HYPERSENSITIVITY
     Dosage: UNK
  6. PRAVASTATIN [Concomitant]
     Indication: BLOOD CHOLESTEROL INCREASED
     Dosage: UNK
  7. PROPRANOLOL [Concomitant]
     Indication: TREMOR
     Dosage: 20 MG, UNK
  8. FISH OIL [Concomitant]
     Dosage: UNK
  9. BABY ASPIRIN [Concomitant]
     Dosage: UNK
  10. CRANBERRY [Concomitant]

REACTIONS (1)
  - Blister [Unknown]
